FAERS Safety Report 22115002 (Version 2)
Quarter: 2023Q2

REPORT INFORMATION
  Report Type: Report from Study
  Country: ES (occurrence: ES)
  Receive Date: 20230320
  Receipt Date: 20230411
  Transmission Date: 20230721
  Serious: Yes (Other)
  Sender: FDA-Public Use
  Company Number: ES-GRUNENTHAL-2022-110313

PATIENT
  Age: 53 Year
  Sex: Female

DRUGS (5)
  1. QUTENZA [Suspect]
     Active Substance: CAPSAICIN
     Indication: Procedural pain
     Dosage: 1 DOSAGE FORM
     Route: 065
     Dates: start: 20230302, end: 20230302
  2. QUTENZA [Suspect]
     Active Substance: CAPSAICIN
     Indication: Neuralgia
     Dosage: 1 DOSAGE FORM
     Route: 065
     Dates: start: 20221205, end: 20221205
  3. LYRICA [Concomitant]
     Active Substance: PREGABALIN
     Dosage: 1 DOSAGE FORM, 2/DAY
     Route: 065
  4. DEXKETOPROFEN TROMETAMOL [Concomitant]
     Active Substance: DEXKETOPROFEN TROMETAMOL
     Dosage: UNK, AS NEEDED
     Route: 065
  5. OMEPRAZOLE [Concomitant]
     Active Substance: OMEPRAZOLE
     Dosage: 20 MILLIGRAM, 1/DAY
     Route: 065

REACTIONS (6)
  - Application site pain [Recovered/Resolved]
  - Drug ineffective [Not Recovered/Not Resolved]
  - Application site pain [Recovered/Resolved]
  - Dizziness [Recovered/Resolved]
  - Malaise [Recovered/Resolved]
  - Vomiting [Recovered/Resolved]

NARRATIVE: CASE EVENT DATE: 20221205
